FAERS Safety Report 22385007 (Version 1)
Quarter: 2023Q2

REPORT INFORMATION
  Report Type: Report from Study
  Country: US (occurrence: US)
  Receive Date: 20230530
  Receipt Date: 20230530
  Transmission Date: 20230722
  Serious: Yes (Other)
  Sender: FDA-Public Use
  Company Number: US-VERTEX PHARMACEUTICALS-2022-007392

PATIENT
  Age: 26 Year
  Sex: Male

DRUGS (7)
  1. TRIKAFTA [Suspect]
     Active Substance: ELEXACAFTOR\IVACAFTOR\TEZACAFTOR
     Indication: Cystic fibrosis
     Dosage: 2 ORANGE TAB IN AM; 1 BLUE TAB IN PM
     Route: 048
     Dates: start: 20210408, end: 202205
  2. TRIKAFTA [Suspect]
     Active Substance: ELEXACAFTOR\IVACAFTOR\TEZACAFTOR
     Dosage: 1 ORANGE TAB DAILY FOR 1 WEEK/ DAY; NO BLUE TAB
     Route: 048
     Dates: start: 20220531, end: 20220610
  3. TRIKAFTA [Suspect]
     Active Substance: ELEXACAFTOR\IVACAFTOR\TEZACAFTOR
     Dosage: 2 ORANGE TAB IN AM; 1 BLUE TAB IN PM
     Route: 048
     Dates: start: 20220610
  4. ALBUTEROL [Concomitant]
     Active Substance: ALBUTEROL
     Dosage: NEB
  5. PULMOZYME [Concomitant]
     Active Substance: DORNASE ALFA
  6. SODIUM CHLORIDE [Concomitant]
     Active Substance: SODIUM CHLORIDE
  7. CREON [Concomitant]
     Active Substance: PANCRELIPASE AMYLASE\PANCRELIPASE LIPASE\PANCRELIPASE PROTEASE

REACTIONS (5)
  - Blood alkaline phosphatase increased [Recovered/Resolved]
  - Blood bilirubin increased [Recovering/Resolving]
  - Bilirubin conjugated increased [Recovered/Resolved]
  - Dehydration [Unknown]
  - Substance abuse [Unknown]

NARRATIVE: CASE EVENT DATE: 20220325
